FAERS Safety Report 7776911-6 (Version None)
Quarter: 2011Q3

REPORT INFORMATION
  Report Type: 
  Country: None (occurrence: None)
  Receive Date: 20110923
  Receipt Date: 20110923
  Transmission Date: 20111222
  Serious: Yes (Hospitalization)
  Sender: FDA-Public Use
  Company Number: None

PATIENT
  Age: 65 Year
  Sex: Male
  Weight: 116.5 kg

DRUGS (1)
  1. EXENATIDE [Suspect]
     Dosage: 10 MCG BID
     Dates: start: 20110223, end: 20110504

REACTIONS (1)
  - DIARRHOEA [None]
